FAERS Safety Report 15663423 (Version 2)
Quarter: 2019Q1

REPORT INFORMATION
  Report Type: Spontaneous
  Country: AT (occurrence: AT)
  Receive Date: 20181128
  Receipt Date: 20190114
  Transmission Date: 20190417
  Serious: Yes (Hospitalization, Other)
  Sender: FDA-Public Use
  Company Number: AT-UCBSA-2018051326

PATIENT
  Age: 35 Year
  Sex: Female

DRUGS (6)
  1. CIMZIA [Suspect]
     Active Substance: CERTOLIZUMAB PEGOL
     Indication: RHEUMATOID ARTHRITIS
     Dosage: 200 MG, EV 2 WEEKS(QOW)
     Route: 058
     Dates: start: 201301, end: 201404
  2. EBETREXAT [Concomitant]
     Active Substance: METHOTREXATE SODIUM
     Indication: PRODUCT USED FOR UNKNOWN INDICATION
     Route: 048
     Dates: start: 201505, end: 201702
  3. EBETREXAT [Concomitant]
     Active Substance: METHOTREXATE SODIUM
     Route: 048
     Dates: start: 201301, end: 201404
  4. ISONIAZID. [Concomitant]
     Active Substance: ISONIAZID
     Indication: TUBERCULOSIS
     Dosage: UNK
  5. FOLSAN [Concomitant]
     Active Substance: FOLIC ACID
     Indication: PRODUCT USED FOR UNKNOWN INDICATION
     Route: 048
  6. CIMZIA [Suspect]
     Active Substance: CERTOLIZUMAB PEGOL
     Dosage: 200 MG, EV 2 WEEKS(QOW)
     Route: 058
     Dates: start: 201512, end: 201706

REACTIONS (6)
  - Uterine neoplasm [Recovered/Resolved]
  - Haemorrhage [Recovered/Resolved]
  - Ascites [Unknown]
  - Uterine cyst [Recovered/Resolved]
  - Pancreatic cyst [Unknown]
  - Hepatic cyst [Unknown]

NARRATIVE: CASE EVENT DATE: 201712
